FAERS Safety Report 9403773 (Version 1)
Quarter: 2013Q3

REPORT INFORMATION
  Report Type: Spontaneous
  Country: US (occurrence: US)
  Receive Date: 20130717
  Receipt Date: 20130717
  Transmission Date: 20140515
  Serious: No
  Sender: FDA-Public Use
  Company Number: US-BAYER-2013-085923

PATIENT
  Sex: Female
  Weight: 102 kg

DRUGS (9)
  1. BETASERON [Suspect]
     Dosage: 0.25 MG, QOD
     Route: 058
  2. AMBIEN [Concomitant]
     Dosage: 5 MG, UNK
  3. TYLENOL WITH CODEIN #3 [Concomitant]
  4. PRAVASTATIN [Concomitant]
     Dosage: 10 MG, UNK
  5. NABUMETONE [Concomitant]
     Dosage: 500 MG, UNK
  6. LISINOPRIL [Concomitant]
     Dosage: 5 MG, UNK
  7. LAMOTRIGINE [Concomitant]
     Dosage: 200 MG, UNK
  8. WELLBUTRIN [Concomitant]
     Dosage: 300 MG, UNK
  9. LEVOTHYROXIN [Concomitant]
     Dosage: 25 ?G, UNK

REACTIONS (1)
  - Drug ineffective [Unknown]
